FAERS Safety Report 6905037-6 (Version None)
Quarter: 2010Q3

REPORT INFORMATION
  Report Type: 
  Country: None (occurrence: None)
  Receive Date: 20100804
  Receipt Date: 20090901
  Transmission Date: 20110219
  Serious: No
  Sender: FDA-Public Use
  Company Number: US-PFIZER INC-2009235570

PATIENT
  Sex: Female
  Weight: 57.6 kg

DRUGS (9)
  1. LYRICA [Suspect]
     Indication: FIBROMYALGIA
     Dosage: 50 MG, 3X/DAY
     Route: 048
     Dates: start: 20080301
  2. RANITIDINE [Concomitant]
  3. TRAZODONE [Concomitant]
  4. LEVOTHYROXINE [Concomitant]
  5. DIAZEPAM [Concomitant]
  6. DETROL [Concomitant]
  7. HYDROCODONE [Concomitant]
  8. SOMA [Concomitant]
  9. DURAGESIC-100 [Concomitant]

REACTIONS (3)
  - BODY HEIGHT DECREASED [None]
  - PAIN [None]
  - SOMNOLENCE [None]
